FAERS Safety Report 6115900-4 (Version None)
Quarter: 2009Q1

REPORT INFORMATION
  Report Type: 
  Country: None (occurrence: None)
  Receive Date: 20090311
  Receipt Date: 20090223
  Transmission Date: 20090719
  Serious: Yes (Hospitalization)
  Sender: FDA-Public Use
  Company Number: 000471

PATIENT
  Sex: Male

DRUGS (4)
  1. EDEX [Suspect]
     Indication: ERECTILE DYSFUNCTION
     Dosage: (5 ?G QD INTRACAVERNOUS)
     Route: 017
     Dates: start: 20081128, end: 20081128
  2. CALCIUM CHANNEL BLOCKERS [Concomitant]
  3. BETA BLOCKING AGENTS [Concomitant]
  4. ANGIOTENSIN II ANTAGONISTS AND DIURETICS [Concomitant]

REACTIONS (10)
  - ANXIETY [None]
  - BLOOD GLUCOSE INCREASED [None]
  - FEELING HOT [None]
  - HYPERHIDROSIS [None]
  - HYPERTENSION [None]
  - HYPOPHOSPHATAEMIA [None]
  - MALAISE [None]
  - MYOCARDIAL ISCHAEMIA [None]
  - TACHYCARDIA [None]
  - VERTIGO [None]
